FAERS Safety Report 21692593 (Version 2)
Quarter: 2023Q1

REPORT INFORMATION
  Report Type: Spontaneous
  Country: US (occurrence: US)
  Receive Date: 20221207
  Receipt Date: 20230308
  Transmission Date: 20230418
  Serious: No
  Sender: FDA-Public Use
  Company Number: US-ESPERIONTHERAPEUTICS-2022USA01992

PATIENT
  Sex: Female
  Weight: 63.946 kg

DRUGS (48)
  1. NEXLIZET [Suspect]
     Active Substance: BEMPEDOIC ACID\EZETIMIBE
     Indication: Blood cholesterol abnormal
     Dosage: 180 MG/10 MG, QD
     Route: 048
     Dates: start: 20220125, end: 20221109
  2. ALPRAZOLAM [Concomitant]
     Active Substance: ALPRAZOLAM
     Dosage: 0.5 MILLIGRAM (1 TABLET), BID
     Route: 048
  3. ALREX [Concomitant]
     Active Substance: LOTEPREDNOL ETABONATE
     Dosage: 1 DROP, INTO EACH EYE BID, PRN
     Route: 047
  4. AMLODIPINE [Concomitant]
     Active Substance: AMLODIPINE BESYLATE
     Dosage: 5 MILLIGRAM, BID
     Route: 048
  5. BENZONATATE [Concomitant]
     Active Substance: BENZONATATE
     Indication: Cough
     Dosage: 100 MILLIGRAM (1 CAPSULE), TID (PRN FOR COUGH)
     Route: 048
  6. BIOTIN [Concomitant]
     Active Substance: BIOTIN
     Dosage: 5000 MICROGRAM
     Route: 048
  7. COZAAR [Concomitant]
     Active Substance: LOSARTAN POTASSIUM
     Dosage: 50 MILLIGRAM, BID
     Route: 048
  8. DIVIGEL [Concomitant]
     Active Substance: ESTRADIOL
     Dosage: 1 PACKET (0.1% TRANSDERMAL GEL), QD TO UPPER THIGH
     Route: 061
  9. EPINEPHRINE [Concomitant]
     Active Substance: EPINEPHRINE
     Dosage: 0.3 MILLILITER, PRN
     Route: 030
  10. ESCITALOPRAM [Concomitant]
     Active Substance: ESCITALOPRAM OXALATE
     Dosage: 10 MILLIGRAM, QD
     Route: 048
  11. ESOMEPRAZOLE MAGNESIUM [Concomitant]
     Active Substance: ESOMEPRAZOLE MAGNESIUM
     Dosage: 20 MILLIGRAM, QD (1 HOUR BEFORE EATING)
     Route: 048
  12. EZETIMIBE [Concomitant]
     Active Substance: EZETIMIBE
     Dosage: 10 MILLIGRAM, QD
     Route: 048
  13. FARXIGA [Concomitant]
     Active Substance: DAPAGLIFLOZIN PROPANEDIOL
     Dosage: 10 MILLIGRAM, QD
     Route: 048
  14. FENOFIBRIC ACID [Concomitant]
     Active Substance: FENOFIBRIC ACID
     Dosage: 135 MILLIGRAM, QD
     Route: 048
  15. FLORASTOR [LACTOBACILLUS ACIDOPHILUS] [Concomitant]
     Dosage: UNK
     Route: 065
  16. FLUCONAZOLE [Concomitant]
     Active Substance: FLUCONAZOLE
     Indication: Fungal infection
     Dosage: 150 MILLIGRAM, SINGLE
     Route: 048
  17. FLUOROMETHOLONE [Concomitant]
     Active Substance: FLUOROMETHOLONE
     Dosage: 1 DROP INTO EACH EYE, BID
     Route: 047
  18. GLIPIZIDE [Concomitant]
     Active Substance: GLIPIZIDE
     Dosage: 5 MILLIGRAM, QD (1 TABLET IN THE MORNING, 1/2 AT NIGHT)
     Route: 048
  19. HYDROCORTISONE [Concomitant]
     Active Substance: HYDROCORTISONE
     Dosage: UNKNOWN (2.5 % CREAM WITH PERINEAL APPLICATOR)
     Route: 061
  20. HYDROQUINONE [Concomitant]
     Active Substance: HYDROQUINONE
     Dosage: UNKNOWN (4% CREAM)
     Route: 061
  21. IPRATROPIUM BROMIDE [Concomitant]
     Active Substance: IPRATROPIUM BROMIDE
     Dosage: 2 SPRAYS IN EACH NOSTRIL, TID
     Route: 045
  22. JARDIANCE [Concomitant]
     Active Substance: EMPAGLIFLOZIN
     Dosage: 25 MILLIGRAM (1 TABLET), QD
     Route: 048
  23. LASIX [Concomitant]
     Active Substance: FUROSEMIDE
     Dosage: 20 MILLIGRAM, QD
     Route: 048
  24. LORAZEPAM [Concomitant]
     Active Substance: LORAZEPAM
     Indication: Anxiety
     Dosage: 0.5 MILLIGRAM, BID
     Route: 048
  25. MONTELUKAST [Concomitant]
     Active Substance: MONTELUKAST SODIUM
     Dosage: 10 MILLIGRAM, QD (AT BEDTIME)
     Route: 048
  26. MOUNJARO [Concomitant]
     Active Substance: TIRZEPATIDE
     Dosage: 10 MILLIGRAM, QW (10MG/0.5ML)
     Route: 058
  27. MOUNJARO [Concomitant]
     Active Substance: TIRZEPATIDE
     Dosage: 5 MILLIGRAM, QW (5MG/0.5ML)
     Route: 058
  28. MOUNJARO [Concomitant]
     Active Substance: TIRZEPATIDE
     Dosage: 7.5 MILLIGRAM, QW (7.5MG/0.5ML)
     Route: 058
  29. MUCINEX [Concomitant]
     Active Substance: GUAIFENESIN
     Dosage: UNKNOWN
     Route: 065
  30. VITAMINS [Concomitant]
     Active Substance: VITAMINS
     Dosage: UNKNOWN
     Route: 065
  31. OMEGA-3 FATTY ACIDS [Concomitant]
     Active Substance: OMEGA-3 FATTY ACIDS
     Dosage: UNKNOWN
     Route: 065
  32. OSTEO BI-FLEX [CHONDROITIN SULFATE;GLUCOSAMINE HYDROCHLORIDE] [Concomitant]
     Dosage: UNKNOWN
     Route: 065
  33. OZEMPIC [Concomitant]
     Active Substance: SEMAGLUTIDE
     Dosage: 2 MILLIGRAM, QW
     Route: 058
  34. PANTOPRAZOLE [Concomitant]
     Active Substance: PANTOPRAZOLE
     Dosage: 40 MILLIGRAM, QD BEFORE BREAKFAST
     Route: 048
  35. POTASSIUM CHLORIDE [Concomitant]
     Active Substance: POTASSIUM CHLORIDE
     Dosage: 2 CAPSULES, QD
     Route: 048
  36. PREDNISOLONE ACETATE [Concomitant]
     Active Substance: PREDNISOLONE ACETATE
     Dosage: 1 DROP INTO EACH EYE, TID
     Route: 047
  37. PROGESTERONE [Concomitant]
     Active Substance: PROGESTERONE
     Dosage: 200 MILLIGRAM, QD AT BEDTIME
     Route: 048
  38. SYNTHROID [Concomitant]
     Active Substance: LEVOTHYROXINE SODIUM
     Dosage: 100 MICROGRAM, QD
     Route: 048
  39. TERCONAZOLE [Concomitant]
     Active Substance: TERCONAZOLE
     Dosage: 1 APPLICATORFUL, QHS
     Route: 065
  40. DEXAMETHASONE\TOBRAMYCIN [Concomitant]
     Active Substance: DEXAMETHASONE\TOBRAMYCIN
     Dosage: 1 DROP INTO LEFT EYE, BID
     Route: 047
  41. TOPROL XL [Concomitant]
     Active Substance: METOPROLOL SUCCINATE
     Dosage: 50 MILLIGRAM, BID
     Route: 048
  42. TRAZODONE [Concomitant]
     Active Substance: TRAZODONE HYDROCHLORIDE
     Dosage: 50 MILLIGRAM (1 TABLET), QD AT BEDTIME
     Route: 048
  43. VALACYCLOVIR HYDROCHLORIDE [Concomitant]
     Active Substance: VALACYCLOVIR HYDROCHLORIDE
     Dosage: 500 MILLIGRAM, PRN
     Route: 065
  44. VASCEPA [Concomitant]
     Active Substance: ICOSAPENT ETHYL
     Dosage: 2 CAPSULES(1G PER CAPSULE), BID
     Route: 048
  45. VENTOLIN [Concomitant]
     Active Substance: ALBUTEROL SULFATE
     Indication: Dyspnoea
     Dosage: 1 TO 2 PUFFS, Q6H (PRN FOR SOB)
  46. VITAMIN C [Concomitant]
     Active Substance: ASCORBIC ACID
     Dosage: 500 MILLIGRAM
     Route: 048
  47. VITAMIN D NOS [Concomitant]
     Active Substance: VITAMIN D NOS
     Dosage: 5000 UNK
     Route: 065
  48. ZYRTEC [Concomitant]
     Active Substance: CETIRIZINE HYDROCHLORIDE
     Dosage: UNKNOWN
     Route: 065

REACTIONS (10)
  - Tendon pain [Not Recovered/Not Resolved]
  - Bursitis [Not Recovered/Not Resolved]
  - Musculoskeletal discomfort [Not Recovered/Not Resolved]
  - Sacral pain [Unknown]
  - Arthritis [Unknown]
  - Tendonitis [Not Recovered/Not Resolved]
  - Pain in extremity [Unknown]
  - Arthralgia [Unknown]
  - Tendon injury [Not Recovered/Not Resolved]
  - Tendon rupture [Not Recovered/Not Resolved]

NARRATIVE: CASE EVENT DATE: 20220101
